FAERS Safety Report 5871102-8 (Version None)
Quarter: 2008Q3

REPORT INFORMATION
  Report Type: 
  Country: None (occurrence: None)
  Receive Date: 20080904
  Receipt Date: 20080827
  Transmission Date: 20090109
  Serious: Yes (Hospitalization, Other)
  Sender: FDA-Public Use
  Company Number: GB-PFIZER INC-2008063495

PATIENT
  Age: 74 Year
  Sex: Male

DRUGS (12)
  1. ATORVASTATIN [Interacting]
     Indication: HYPERCHOLESTEROLAEMIA
  2. FUSIDIC ACID [Suspect]
     Route: 048
  3. FLOXACILLIN SODIUM [Suspect]
     Route: 048
  4. ACETYLSALICYLIC ACID SRT [Concomitant]
     Route: 048
  5. CLOPIDOGREL [Concomitant]
     Route: 048
  6. BISOPROLOL FUMARATE [Concomitant]
     Route: 048
  7. SPIRONOLACTONE [Concomitant]
     Route: 048
  8. AMLODIPINE [Concomitant]
     Route: 048
  9. FUROSEMIDE [Concomitant]
     Route: 048
  10. INSULIN [Concomitant]
     Route: 058
  11. LANSOPRAZOLE [Concomitant]
     Route: 048
  12. EPOGEN [Concomitant]
     Route: 058

REACTIONS (3)
  - DRUG INTERACTION [None]
  - OSTEOMYELITIS [None]
  - RHABDOMYOLYSIS [None]
